FAERS Safety Report 8503484-2 (Version None)
Quarter: 2012Q3

REPORT INFORMATION
  Report Type: 
  Country: None (occurrence: None)
  Receive Date: 20120711
  Receipt Date: 20120705
  Transmission Date: 20120928
  Serious: Yes (Other)
  Sender: FDA-Public Use
  Company Number: FR-GLAXOSMITHKLINE-B0784327A

PATIENT
  Sex: Female
  Weight: 60 kg

DRUGS (7)
  1. GAVISCON [Concomitant]
     Indication: GASTROOESOPHAGEAL REFLUX DISEASE
     Route: 048
     Dates: start: 20120516, end: 20120620
  2. MAGNE B6 [Concomitant]
     Indication: MUSCLE SPASMS
     Dosage: 940MG PER DAY
     Route: 048
     Dates: start: 20120401, end: 20120629
  3. URBANYL [Concomitant]
     Indication: EPILEPSY
     Dosage: 5MG PER DAY
     Route: 048
     Dates: start: 20120127
  4. LAMICTAL [Suspect]
     Indication: EPILEPSY
     Route: 048
  5. FOLIC ACID [Concomitant]
     Indication: PROPHYLAXIS
     Dosage: 5MG PER DAY
     Route: 048
     Dates: start: 20110623, end: 20120626
  6. LANSOPRAZOLE [Concomitant]
     Indication: GASTROOESOPHAGEAL REFLUX DISEASE
     Dosage: 15MG PER DAY
     Route: 048
     Dates: start: 20120430, end: 20120611
  7. FERROUS SULFATE TAB [Concomitant]
     Indication: ANAEMIA
     Dosage: 1UNIT PER DAY
     Route: 048
     Dates: start: 20120103, end: 20120629

REACTIONS (4)
  - COMA [None]
  - MATERNAL EXPOSURE DURING PREGNANCY [None]
  - LIVE BIRTH [None]
  - EPILEPSY [None]
